FAERS Safety Report 5080170-5 (Version None)
Quarter: 2006Q3

REPORT INFORMATION
  Report Type: 
  Country: None (occurrence: None)
  Receive Date: 20060810
  Receipt Date: 20060726
  Transmission Date: 20061208
  Serious: Yes (Hospitalization, Other)
  Sender: FDA-Public Use
  Company Number: US200601000842

PATIENT
  Age: 46 Year
  Sex: Female
  Weight: 90.7 kg

DRUGS (8)
  1. ZYPREXA [Suspect]
     Indication: DEPRESSION
     Dosage: 5 MG,  15 MG
     Dates: start: 19980901, end: 20010605
  2. ZYPREXA [Suspect]
     Indication: DEPRESSION
     Dosage: 5 MG,  15 MG
     Dates: start: 20010605, end: 20050101
  3. ZYPREXA [Suspect]
     Indication: DEPRESSION
     Dosage: 5 MG,  15 MG
     Dates: start: 19980201
  4. WELLBUTRIN [Concomitant]
  5. ANAFRANIL [Concomitant]
  6. PAXIL [Concomitant]
  7. LOPRESSOR [Concomitant]
  8. DEPO-PROVERA SUSPENSION/INJ [Concomitant]

REACTIONS (7)
  - BLOOD TRIGLYCERIDES INCREASED [None]
  - CHOLELITHIASIS [None]
  - DIABETES MELLITUS NON-INSULIN-DEPENDENT [None]
  - DIABETIC NEUROPATHY [None]
  - GLYCOSURIA [None]
  - HYPERTENSION [None]
  - OBESITY [None]
